FAERS Safety Report 7659769-5 (Version None)
Quarter: 2011Q3

REPORT INFORMATION
  Report Type: 
  Country: None (occurrence: None)
  Receive Date: 20110805
  Receipt Date: 20101115
  Transmission Date: 20111222
  Serious: No
  Sender: FDA-Public Use
  Company Number: US-ABBOTT-10P-163-0685816-00

PATIENT
  Sex: Female
  Weight: 87.168 kg

DRUGS (8)
  1. DEPAKOTE ER [Suspect]
     Indication: MEMORY IMPAIRMENT
     Route: 048
     Dates: start: 20040101, end: 20090801
  2. EVISTA [Concomitant]
     Indication: PRODUCT USED FOR UNKNOWN INDICATION
  3. MAXZIDE [Concomitant]
     Indication: HYPERTENSION
  4. CYMBALTA [Concomitant]
     Indication: DEPRESSION
     Dates: start: 20060101
  5. ZOCOR [Concomitant]
     Indication: PRODUCT USED FOR UNKNOWN INDICATION
  6. DEPAKOTE ER [Suspect]
     Indication: CONVULSION
  7. ATENOLOL [Concomitant]
     Indication: HYPERTENSION
  8. AZILECT [Concomitant]
     Indication: PARKINSON'S DISEASE
     Dates: start: 20100821

REACTIONS (4)
  - GAIT DISTURBANCE [None]
  - DRUG DOSE OMISSION [None]
  - TREMOR [None]
  - PARKINSON'S DISEASE [None]
